FAERS Safety Report 5910688-1 (Version None)
Quarter: 2008Q4

REPORT INFORMATION
  Report Type: 
  Country: None (occurrence: None)
  Receive Date: 20081007
  Receipt Date: 20080926
  Transmission Date: 20090506
  Serious: Yes (Disabling)
  Sender: FDA-Public Use
  Company Number: JP-MERCK-0809USA00136

PATIENT
  Age: 41 Year
  Sex: Male

DRUGS (5)
  1. PEPCID RPD [Suspect]
     Indication: PROPHYLAXIS
     Route: 048
     Dates: start: 20080301, end: 20080827
  2. FOSAMAX [Suspect]
     Indication: URTICARIA CHRONIC
     Route: 048
     Dates: start: 20080605, end: 20080825
  3. PREDONINE [Suspect]
     Indication: URTICARIA CHRONIC
     Route: 048
     Dates: start: 20080301
  4. CLARITIN REDITABS [Suspect]
     Indication: URTICARIA CHRONIC
     Route: 048
     Dates: start: 20080423
  5. TAVEGYL [Suspect]
     Indication: URTICARIA CHRONIC
     Route: 048
     Dates: start: 20080805

REACTIONS (1)
  - BLOOD CREATINE PHOSPHOKINASE INCREASED [None]
